FAERS Safety Report 8007275-0 (Version None)
Quarter: 2011Q4

REPORT INFORMATION
  Report Type: 
  Country: None (occurrence: None)
  Receive Date: 20111227
  Receipt Date: 20111222
  Transmission Date: 20120403
  Serious: Yes (Other)
  Sender: FDA-Public Use
  Company Number: BR-PFIZER INC-2011311619

PATIENT
  Age: 49 Year
  Sex: Female
  Weight: 85 kg

DRUGS (3)
  1. MICARDIS [Concomitant]
     Indication: HYPERTENSION
     Dosage: 12.5 / 80 MG, UNK
     Dates: start: 20060101
  2. LIPITOR [Suspect]
     Indication: BLOOD CHOLESTEROL INCREASED
     Dosage: 20 MG, 1X/DAY
     Route: 048
     Dates: start: 20111018, end: 20111101
  3. LEVOID [Concomitant]
     Indication: THYROID DISORDER
     Dosage: 50 MG, UNK
     Dates: start: 20110101

REACTIONS (4)
  - MYALGIA [None]
  - SWELLING [None]
  - PAIN IN EXTREMITY [None]
  - ARTHRALGIA [None]
